FAERS Safety Report 4998817-8 (Version None)
Quarter: 2006Q2

REPORT INFORMATION
  Report Type: 
  Country: None (occurrence: None)
  Receive Date: 20060510
  Receipt Date: 20050207
  Transmission Date: 20061013
  Serious: Yes (Hospitalization, Disabling)
  Sender: FDA-Public Use
  Company Number: US-MERCK-0502USA00929

PATIENT
  Age: 57 Year
  Sex: Male
  Weight: 82 kg

DRUGS (7)
  1. VIOXX [Suspect]
     Indication: MUSCULOSKELETAL PAIN
     Route: 048
     Dates: start: 19990101, end: 20010101
  2. VIOXX [Suspect]
     Route: 048
     Dates: start: 19990101, end: 20010101
  3. VIOXX [Suspect]
     Route: 048
     Dates: start: 19990101, end: 20010101
  4. VIOXX [Suspect]
     Indication: SHOULDER PAIN
     Route: 048
     Dates: start: 19990101, end: 20010101
  5. VIOXX [Suspect]
     Route: 048
     Dates: start: 19990101, end: 20010101
  6. VIOXX [Suspect]
     Route: 048
     Dates: start: 19990101, end: 20010101
  7. TYLENOL [Concomitant]
     Route: 065

REACTIONS (6)
  - ACUTE MYOCARDIAL INFARCTION [None]
  - CORONARY ARTERY DISEASE [None]
  - EPISTAXIS [None]
  - GASTRITIS [None]
  - HYPERLIPIDAEMIA [None]
  - PRESCRIBED OVERDOSE [None]
